FAERS Safety Report 14988593 (Version 1)
Quarter: 2018Q2

REPORT INFORMATION
  Report Type: Spontaneous
  Country: US (occurrence: US)
  Receive Date: 20180516
  Receipt Date: 20180516
  Transmission Date: 20180711
  Serious: Yes (Death)
  Sender: FDA-Public Use
  Company Number: None

PATIENT
  Age: 27 Month
  Sex: Male
  Weight: 9.58 kg

DRUGS (1)
  1. VIGABATRIN PACKETS 1,000MG/20ML [Suspect]
     Active Substance: VIGABATRIN
     Indication: INFANTILE SPASMS
     Route: 048

REACTIONS (3)
  - Sudden unexplained death in epilepsy [None]
  - Toxicity to various agents [None]
  - Polymicrogyria [None]

NARRATIVE: CASE EVENT DATE: 20170101
